FAERS Safety Report 11150043 (Version 1)
Quarter: 2015Q2

REPORT INFORMATION
  Report Type: Spontaneous
  Country: CN (occurrence: CN)
  Receive Date: 20150529
  Receipt Date: 20150529
  Transmission Date: 20150821
  Serious: Yes (Hospitalization)
  Sender: FDA-Public Use
  Company Number: CN-ASTRAZENECA-2015SE51156

PATIENT
  Age: 68 Year
  Sex: Male

DRUGS (7)
  1. VASOREL [Concomitant]
     Indication: CARDIOMYOPATHY
     Dates: start: 20150512
  2. PANTOPRAZOLE [Concomitant]
     Active Substance: PANTOPRAZOLE SODIUM
     Indication: GASTRIC DISORDER
     Dates: start: 20150512
  3. BISOPROLOL [Concomitant]
     Active Substance: BISOPROLOL
     Dates: start: 20150512
  4. BYASPIRIN [Concomitant]
     Dates: start: 20150512
  5. ATORVASTATIN [Concomitant]
     Active Substance: ATORVASTATIN
     Dates: start: 20150512
  6. BRILINTA [Suspect]
     Active Substance: TICAGRELOR
     Route: 002
     Dates: start: 20150512, end: 20150520
  7. ACERTIL [Concomitant]
     Indication: HYPERTENSION
     Dates: start: 20150512

REACTIONS (2)
  - Dyspnoea [Unknown]
  - Chest discomfort [Unknown]
